FAERS Safety Report 6730943-5 (Version None)
Quarter: 2010Q2

REPORT INFORMATION
  Report Type: 
  Country: None (occurrence: None)
  Receive Date: 20100514
  Receipt Date: 20100507
  Transmission Date: 20101027
  Serious: Yes (Hospitalization)
  Sender: FDA-Public Use
  Company Number: 7004141

PATIENT
  Age: 48 Year
  Sex: Female

DRUGS (6)
  1. REBIF [Suspect]
     Indication: MULTIPLE SCLEROSIS
     Dosage: 44 MCG, 3 IN 1 WK, SUBCUTANEOUS
     Route: 058
     Dates: start: 20090501
  2. APO-FENO (FENOFIBRATE) [Concomitant]
  3. ASAPHEN (ACETYLSALICYLIC ACID) [Concomitant]
  4. PERINDOPRIL ERBUMINE [Concomitant]
  5. NOVO-METROPOL (METOPROLOL TARTRATE) [Concomitant]
  6. PMS-MIRTAZAPINE (MIRTAZAPINE) [Concomitant]

REACTIONS (2)
  - FAMILY STRESS [None]
  - PSYCHOTIC DISORDER [None]
